FAERS Safety Report 6551113-X (Version None)
Quarter: 2010Q1

REPORT INFORMATION
  Report Type: 
  Country: None (occurrence: None)
  Receive Date: 20100125
  Receipt Date: 20100114
  Transmission Date: 20100710
  Serious: Yes (Death, Hospitalization, Other)
  Sender: FDA-Public Use
  Company Number: US-BAXTER-2009BH017525

PATIENT
  Age: 64 Year
  Sex: Male

DRUGS (14)
  1. HEPARIN SODIUM INJECTION [Suspect]
     Indication: DRUG USE FOR UNKNOWN INDICATION
     Route: 065
     Dates: start: 20071221, end: 20071221
  2. HEPARIN SODIUM INJECTION [Suspect]
     Route: 065
     Dates: start: 20071223, end: 20071223
  3. HEPARIN SODIUM INJECTION [Suspect]
     Route: 065
     Dates: start: 20071224, end: 20071224
  4. HEPARIN SODIUM INJECTION [Suspect]
     Route: 065
     Dates: start: 20071225, end: 20071225
  5. HEPARIN SODIUM INJECTION [Suspect]
     Route: 065
     Dates: start: 20071228, end: 20071228
  6. HEPARIN SODIUM INJECTION [Suspect]
     Route: 065
     Dates: start: 20071229, end: 20071229
  7. HEPARIN SODIUM INJECTION [Suspect]
     Route: 065
     Dates: start: 20080203, end: 20080203
  8. HEPARIN SODIUM 5,000 UNITS IN DEXTROSE 5% [Suspect]
     Indication: DRUG USE FOR UNKNOWN INDICATION
     Route: 042
  9. TOPROL-XL [Concomitant]
     Indication: DRUG USE FOR UNKNOWN INDICATION
     Route: 065
  10. LISINOPRIL [Concomitant]
     Indication: DRUG USE FOR UNKNOWN INDICATION
     Route: 065
  11. WARFARIN [Concomitant]
     Indication: DRUG USE FOR UNKNOWN INDICATION
     Route: 065
  12. GLIPIZIDE [Concomitant]
     Indication: DRUG USE FOR UNKNOWN INDICATION
     Route: 065
  13. AMIODARONE [Concomitant]
     Indication: DRUG USE FOR UNKNOWN INDICATION
     Route: 065
  14. METFORMIN [Concomitant]
     Indication: DRUG USE FOR UNKNOWN INDICATION
     Route: 065

REACTIONS (9)
  - ATRIAL FIBRILLATION [None]
  - DISTURBANCE IN ATTENTION [None]
  - HEPARIN-INDUCED THROMBOCYTOPENIA [None]
  - HYPERSENSITIVITY [None]
  - INTESTINAL INFARCTION [None]
  - ISCHAEMIC HEPATITIS [None]
  - PERIPHERAL EMBOLISM [None]
  - RENAL FAILURE ACUTE [None]
  - RESPIRATORY FAILURE [None]
